FAERS Safety Report 9970268 (Version 2)
Quarter: 2014Q1

REPORT INFORMATION
  Report Type: Spontaneous
  Country: US (occurrence: US)
  Receive Date: 20140306
  Receipt Date: 20140317
  Transmission Date: 20141002
  Serious: Yes (Other)
  Sender: FDA-Public Use
  Company Number: US-BAYER-2014-032398

PATIENT
  Age: 35 Year
  Sex: Female
  Weight: 81.63 kg

DRUGS (1)
  1. MIRENA [Suspect]
     Indication: CONTRACEPTION
     Dosage: 20 MCG/24HR, CONT
     Route: 015
     Dates: start: 20080724, end: 20110228

REACTIONS (7)
  - Uterine perforation [None]
  - Device issue [None]
  - Menorrhagia [None]
  - Device difficult to use [None]
  - Injury [None]
  - Pain [None]
  - Emotional distress [None]
